FAERS Safety Report 7939303-2 (Version None)
Quarter: 2011Q4

REPORT INFORMATION
  Report Type: 
  Country: None (occurrence: None)
  Receive Date: 20111125
  Receipt Date: 20110218
  Transmission Date: 20120403
  Serious: No
  Sender: FDA-Public Use
  Company Number: US-BAYER-2011-078131

PATIENT
  Sex: Female

DRUGS (1)
  1. LEUKINE [Suspect]
     Indication: MALIGNANT MELANOMA
     Dosage: 250 ?G, UNK
     Route: 058
     Dates: start: 20100308

REACTIONS (3)
  - RASH [None]
  - PRURITUS [None]
  - ERYTHEMA [None]
